FAERS Safety Report 14581904 (Version 1)
Quarter: 2018Q1

REPORT INFORMATION
  Report Type: Spontaneous
  Country: FR (occurrence: FR)
  Receive Date: 20180228
  Receipt Date: 20180228
  Transmission Date: 20180509
  Serious: Yes (Other)
  Sender: FDA-Public Use
  Company Number: FR-EMD SERONO-E2B_90024679

PATIENT
  Age: 33 Year
  Sex: Female

DRUGS (5)
  1. PUREGON                            /01348901/ [Suspect]
     Active Substance: FOLLITROPIN
     Indication: OVULATION INDUCTION
     Route: 058
     Dates: start: 201710
  2. OVITRELLE [Suspect]
     Active Substance: CHORIOGONADOTROPIN ALFA
     Indication: OVULATION INDUCTION
     Route: 058
     Dates: start: 201609
  3. ORGALUTRAN [Suspect]
     Active Substance: GANIRELIX ACETATE
     Indication: OVULATION INDUCTION
     Dosage: ORGALUTRAN 0.25 MG / 0.5 ML SOLUTION INJECTABLE
     Route: 058
     Dates: start: 201710
  4. ESTIMA                             /00110701/ [Suspect]
     Active Substance: PROGESTERONE
     Indication: LUTEAL PHASE DEFICIENCY
     Route: 067
     Dates: start: 201704
  5. CLOMID [Suspect]
     Active Substance: CLOMIPHENE CITRATE
     Indication: OVULATION INDUCTION
     Route: 048
     Dates: start: 201609

REACTIONS (1)
  - Glomerulosclerosis [Not Recovered/Not Resolved]

NARRATIVE: CASE EVENT DATE: 201712
